FAERS Safety Report 19379596 (Version 3)
Quarter: 2021Q3

REPORT INFORMATION
  Report Type: Spontaneous
  Country: AU (occurrence: AU)
  Receive Date: 20210607
  Receipt Date: 20210816
  Transmission Date: 20211014
  Serious: Yes (Hospitalization)
  Sender: FDA-Public Use
  Company Number: AU-ROCHE-2841454

PATIENT
  Age: 73 Year
  Sex: Female
  Weight: 74.6 kg

DRUGS (1)
  1. ACTILYSE [Suspect]
     Active Substance: ALTEPLASE
     Indication: ISCHAEMIC STROKE
     Route: 042
     Dates: start: 20210224, end: 20210224

REACTIONS (7)
  - Atrial fibrillation [Not Recovered/Not Resolved]
  - Malaise [Unknown]
  - Headache [Unknown]
  - Infection [Recovered/Resolved]
  - Chills [Unknown]
  - Productive cough [Unknown]
  - Fatigue [Unknown]

NARRATIVE: CASE EVENT DATE: 20210426
